FAERS Safety Report 8804091 (Version 3)
Quarter: 2012Q4

REPORT INFORMATION
  Report Type: 
  Country: JP (occurrence: JP)
  Receive Date: 20120924
  Receipt Date: 20121121
  Transmission Date: 20130627
  Serious: Yes (Other)
  Sender: FDA-Public Use
  Company Number: JP-JNJFOC-20120906815

PATIENT
  Age: 69 Year
  Sex: Male

DRUGS (4)
  1. SIMPONI [Suspect]
     Indication: RHEUMATOID ARTHRITIS
     Route: 058
     Dates: start: 201112
  2. UNISIA [Concomitant]
     Route: 048
  3. NATRIX [Concomitant]
     Route: 048
  4. TACROLIMUS HYDRATE [Concomitant]
     Route: 065

REACTIONS (1)
  - Bone hyperpigmentation [Unknown]
